FAERS Safety Report 6704263-9 (Version None)
Quarter: 2010Q2

REPORT INFORMATION
  Report Type: 
  Country: None (occurrence: None)
  Receive Date: 20100430
  Receipt Date: 20090615
  Transmission Date: 20101027
  Serious: No
  Sender: FDA-Public Use
  Company Number: US-TYCO HEALTHCARE/MALLINCKRODT-T200901243

PATIENT
  Sex: Female

DRUGS (3)
  1. ACETAMINOPHEN AND HYDROCODONE BITARTRATE [Suspect]
     Indication: PAIN
     Dosage: 1-2 Q 6 HR PRN
     Route: 048
     Dates: start: 20090612, end: 20090612
  2. PROZAC                             /00724401/ [Concomitant]
     Dosage: 20 MG, QD
  3. KLONOPIN [Concomitant]
     Dosage: 0.5 MG AT HS

REACTIONS (2)
  - MALAISE [None]
  - NAUSEA [None]
